FAERS Safety Report 4270151-3 (Version None)
Quarter: 2004Q1

REPORT INFORMATION
  Report Type: 
  Country: None (occurrence: None)
  Receive Date: 20040113
  Receipt Date: 20040113
  Transmission Date: 20041129
  Serious: Yes (Hospitalization)
  Sender: FDA-Public Use
  Company Number: None

PATIENT
  Age: 81 Year
  Sex: Male

DRUGS (6)
  1. FUROSEMIDE [Suspect]
     Indication: HYPERTENSION
     Dosage: 20 MG QD
     Dates: start: 20030709
  2. AUGMENTIN [Concomitant]
  3. MORPHINE [Concomitant]
  4. OSCAL [Concomitant]
  5. PAROXETINE [Concomitant]
  6. TRAZODONE HCL [Concomitant]

REACTIONS (4)
  - ASTHENIA [None]
  - DIZZINESS [None]
  - NAUSEA [None]
  - VOMITING [None]
